FAERS Safety Report 7714777-0 (Version None)
Quarter: 2011Q3

REPORT INFORMATION
  Report Type: 
  Country: None (occurrence: None)
  Receive Date: 20110829
  Receipt Date: 20110817
  Transmission Date: 20111222
  Serious: No
  Sender: FDA-Public Use
  Company Number: US-JNJFOC-20110808191

PATIENT
  Age: 45 Year
  Sex: Male

DRUGS (2)
  1. INVEGA SUSTENNA [Suspect]
     Indication: SCHIZOPHRENIA
     Route: 030
     Dates: start: 20110101
  2. GEODON [Concomitant]
     Indication: SCHIZOPHRENIA
     Route: 065
     Dates: start: 20110811

REACTIONS (1)
  - PSYCHOMOTOR HYPERACTIVITY [None]
